FAERS Safety Report 5027422-2 (Version None)
Quarter: 2006Q2

REPORT INFORMATION
  Report Type: 
  Country: None (occurrence: None)
  Receive Date: 20060501
  Receipt Date: 20060220
  Transmission Date: 20061013
  Serious: No
  Sender: FDA-Public Use
  Company Number: 200610965BWH

PATIENT
  Age: 74 Year
  Sex: Female

DRUGS (5)
  1. NEXAVAR [Suspect]
     Indication: RENAL CELL CARCINOMA STAGE UNSPECIFIED
     Dosage: SEE IMAGE
     Route: 048
     Dates: start: 20060201, end: 20060208
  2. NEXAVAR [Suspect]
     Indication: RENAL CELL CARCINOMA STAGE UNSPECIFIED
     Dosage: SEE IMAGE
     Route: 048
     Dates: start: 20060208, end: 20060217
  3. TENORMIN [Concomitant]
  4. SYNTHROID [Concomitant]
  5. ATIVAN [Concomitant]

REACTIONS (4)
  - ALOPECIA [None]
  - BLOOD PRESSURE INCREASED [None]
  - PAIN OF SKIN [None]
  - RASH GENERALISED [None]
